FAERS Safety Report 4319628-2 (Version None)
Quarter: 2004Q1

REPORT INFORMATION
  Report Type: 
  Country: None (occurrence: None)
  Receive Date: 20040319
  Receipt Date: 20020516
  Transmission Date: 20041129
  Serious: Yes (Disabling, Other)
  Sender: FDA-Public Use
  Company Number: WAES 0205USA02063

PATIENT
  Age: 61 Year
  Sex: Male
  Weight: 80 kg

DRUGS (7)
  1. [THERAPY UNSPECIFIED] [Concomitant]
     Indication: PAIN
     Dates: start: 19710101
  2. ASPIRIN [Concomitant]
     Dates: start: 20000101
  3. WELLBUTRIN [Concomitant]
     Dates: start: 19970201
  4. CODEINE [Concomitant]
  5. LOVASTATIN [Concomitant]
     Dates: start: 20000101
  6. NAPROXEN [Concomitant]
     Dates: start: 19950101, end: 19980101
  7. VIOXX [Suspect]
     Indication: ARTHRITIS
     Route: 048
     Dates: end: 20010101

REACTIONS (8)
  - BLOOD CHOLESTEROL INCREASED [None]
  - DYSPEPSIA [None]
  - EMOTIONAL DISTRESS [None]
  - FIBROMYALGIA [None]
  - GALLBLADDER DISORDER [None]
  - HEART RATE IRREGULAR [None]
  - MYOCARDIAL INFARCTION [None]
  - NAUSEA [None]
